FAERS Safety Report 6975013-6 (Version None)
Quarter: 2010Q3

REPORT INFORMATION
  Report Type: 
  Country: None (occurrence: None)
  Receive Date: 20100910
  Receipt Date: 20090122
  Transmission Date: 20110219
  Serious: No
  Sender: FDA-Public Use
  Company Number: US-WYE-H07839409

PATIENT
  Age: 43 Year
  Sex: Female

DRUGS (2)
  1. PRISTIQ [Suspect]
     Indication: MAJOR DEPRESSION
     Dosage: UNSPECIFIED
     Route: 065
  2. PRISTIQ [Suspect]
     Dosage: UNSPECIFIED
     Route: 065

REACTIONS (1)
  - AMENORRHOEA [None]
